FAERS Safety Report 24151157 (Version 2)
Quarter: 2024Q3

REPORT INFORMATION
  Report Type: Spontaneous
  Country: AU (occurrence: AU)
  Receive Date: 20240730
  Receipt Date: 20240821
  Transmission Date: 20241017
  Serious: Yes (Other)
  Sender: CSL BEHRING
  Company Number: AU-BEH-2024176373

PATIENT
  Age: 6 Year

DRUGS (1)
  1. ANTIHEMOPHILIC FACTOR HUMAN [Suspect]
     Active Substance: ANTIHEMOPHILIC FACTOR HUMAN
     Dosage: UNK
     Route: 065
     Dates: start: 1986

REACTIONS (2)
  - Hepatitis C [Unknown]
  - Suspected transmission of an infectious agent via product [Unknown]

NARRATIVE: CASE EVENT DATE: 19860101
